FAERS Safety Report 21847775 (Version 1)
Quarter: 2023Q1

REPORT INFORMATION
  Report Type: Spontaneous
  Country: IT (occurrence: IT)
  Receive Date: 20230111
  Receipt Date: 20230111
  Transmission Date: 20230418
  Serious: Yes (Hospitalization)
  Sender: FDA-Public Use
  Company Number: None

PATIENT
  Age: 63 Year
  Sex: Female

DRUGS (5)
  1. CLONAZEPAM [Suspect]
     Active Substance: CLONAZEPAM
     Dosage: FOUND A PRETTY EMPTY BOTTLE
     Dates: start: 20221116, end: 20221116
  2. VALPROATE SODIUM [Suspect]
     Active Substance: VALPROATE SODIUM
     Dates: start: 20221116, end: 20221116
  3. TRAZODONE HYDROCHLORIDE [Suspect]
     Active Substance: TRAZODONE HYDROCHLORIDE
     Dosage: FOUND A PRETTY EMPTY BOTTLE
     Dates: start: 20221116, end: 20221116
  4. CHARCOAL [Concomitant]
     Active Substance: ACTIVATED CHARCOAL
  5. CARNITINE [Concomitant]
     Active Substance: CARNITINE

REACTIONS (2)
  - Suicide attempt [Unknown]
  - Sopor [Not Recovered/Not Resolved]

NARRATIVE: CASE EVENT DATE: 20221116
